FAERS Safety Report 12819734 (Version 1)
Quarter: 2016Q4

REPORT INFORMATION
  Report Type: Spontaneous
  Country: US (occurrence: US)
  Receive Date: 20161006
  Receipt Date: 20161006
  Transmission Date: 20170207
  Serious: Yes (Disabling)
  Sender: FDA-Public Use
  Company Number: None

PATIENT
  Age: 72 Year
  Sex: Female
  Weight: 115 kg

DRUGS (21)
  1. MIRALAX [Concomitant]
     Active Substance: POLYETHYLENE GLYCOL 3350
  2. SINGULAIR [Concomitant]
     Active Substance: MONTELUKAST SODIUM
  3. LASIX [Concomitant]
     Active Substance: FUROSEMIDE
  4. CLARITIN [Concomitant]
     Active Substance: LORATADINE
  5. SYNTHROID [Concomitant]
     Active Substance: LEVOTHYROXINE SODIUM
  6. PREDNISONE. [Concomitant]
     Active Substance: PREDNISONE
  7. PROCRIT [Concomitant]
     Active Substance: ERYTHROPOIETIN
  8. INSULIN [Concomitant]
     Active Substance: INSULIN NOS
  9. SYMBICORT [Concomitant]
     Active Substance: BUDESONIDE\FORMOTEROL FUMARATE DIHYDRATE
  10. NORCO [Concomitant]
     Active Substance: ACETAMINOPHEN\HYDROCODONE BITARTRATE
  11. PROTONIX [Concomitant]
     Active Substance: PANTOPRAZOLE SODIUM
  12. POTASSIUM [Concomitant]
     Active Substance: POTASSIUM
  13. ATORVASTATIN [Concomitant]
     Active Substance: ATORVASTATIN
  14. ZEMPLAR [Concomitant]
     Active Substance: PARICALCITOL
  15. PROAIR HFA [Concomitant]
     Active Substance: ALBUTEROL SULFATE
  16. ASPIRIN. [Concomitant]
     Active Substance: ASPIRIN
  17. VANCOMYCIN [Suspect]
     Active Substance: VANCOMYCIN
     Indication: INFECTION
     Route: 042
     Dates: start: 20150518, end: 20150522
  18. ULORIC [Concomitant]
     Active Substance: FEBUXOSTAT
  19. JANUVIA [Concomitant]
     Active Substance: SITAGLIPTIN PHOSPHATE
  20. FERROUS SULFATE. [Concomitant]
     Active Substance: FERROUS SULFATE
  21. PROZAC [Concomitant]
     Active Substance: FLUOXETINE HYDROCHLORIDE

REACTIONS (3)
  - Renal failure [None]
  - Drug level increased [None]
  - Dialysis [None]

NARRATIVE: CASE EVENT DATE: 20150525
